FAERS Safety Report 14985687 (Version 2)
Quarter: 2018Q2

REPORT INFORMATION
  Report Type: Spontaneous
  Country: DE (occurrence: DE)
  Receive Date: 20180607
  Receipt Date: 20180620
  Transmission Date: 20180711
  Serious: Yes (Other)
  Sender: FDA-Public Use
  Company Number: DE-BRISTOL-MYERS SQUIBB COMPANY-BMS-2018-050715

PATIENT
  Age: 70 Year
  Sex: Male

DRUGS (1)
  1. OPDIVO [Suspect]
     Active Substance: NIVOLUMAB
     Indication: NON-SMALL CELL LUNG CANCER
     Dosage: UNAVAILABLE
     Route: 065
     Dates: start: 201505

REACTIONS (5)
  - Fatigue [Not Recovered/Not Resolved]
  - Renal impairment [Not Recovered/Not Resolved]
  - Dry mouth [Not Recovered/Not Resolved]
  - Fluid retention [Unknown]
  - Rash [Recovered/Resolved]
